FAERS Safety Report 8982729 (Version 7)
Quarter: 2013Q3

REPORT INFORMATION
  Report Type: Spontaneous
  Country: US (occurrence: US)
  Receive Date: 20121224
  Receipt Date: 20130902
  Transmission Date: 20140515
  Serious: Yes (Hospitalization, Other)
  Sender: FDA-Public Use
  Company Number: US-ROCHE-778440

PATIENT
  Age: 24 Year
  Sex: Male

DRUGS (1)
  1. ACCUTANE [Suspect]
     Indication: ACNE
     Route: 065
     Dates: start: 19960501, end: 19961031

REACTIONS (8)
  - Crohn^s disease [Unknown]
  - Anal abscess [Unknown]
  - Anal fissure [Unknown]
  - Anal fistula [Unknown]
  - Colitis [Unknown]
  - Polyp [Unknown]
  - Anxiety disorder [Unknown]
  - Depression [Unknown]
